FAERS Safety Report 6923012-2 (Version None)
Quarter: 2010Q3

REPORT INFORMATION
  Report Type: 
  Country: None (occurrence: None)
  Receive Date: 20100813
  Receipt Date: 20100805
  Transmission Date: 20110219
  Serious: Yes (Hospitalization)
  Sender: FDA-Public Use
  Company Number: US-PFIZER INC-2010099108

PATIENT
  Sex: Female

DRUGS (5)
  1. NORVASC [Suspect]
  2. MONOPRIL [Suspect]
  3. SYNTHROID [Concomitant]
  4. KLONOPIN [Concomitant]
  5. DURAGESIC-100 [Concomitant]

REACTIONS (5)
  - DEPRESSED MOOD [None]
  - DIZZINESS [None]
  - FATIGUE [None]
  - LYME DISEASE [None]
  - MALAISE [None]
